FAERS Safety Report 9392997 (Version 1)
Quarter: 2013Q3

REPORT INFORMATION
  Report Type: Spontaneous
  Country: AU (occurrence: AU)
  Receive Date: 20130710
  Receipt Date: 20130710
  Transmission Date: 20140515
  Serious: Yes (Death)
  Sender: FDA-Public Use
  Company Number: AU-B.I. PHARMACEUTICALS,INC./RIDGEFIELD-2013-BI-19757YA

PATIENT
  Age: 52 Year
  Sex: Male

DRUGS (1)
  1. TAMSULOSINA [Suspect]
     Route: 048

REACTIONS (1)
  - Sudden death [Fatal]
